FAERS Safety Report 5775826-2 (Version None)
Quarter: 2008Q2

REPORT INFORMATION
  Report Type: 
  Country: None (occurrence: None)
  Receive Date: 20080617
  Receipt Date: 20080609
  Transmission Date: 20081010
  Serious: Yes (Congenital Anomaly, Other)
  Sender: FDA-Public Use
  Company Number: FR-PFIZER INC-2008029760

PATIENT
  Sex: Female
  Weight: 2.8 kg

DRUGS (9)
  1. NELFINAVIR MESILATE [Suspect]
     Indication: HIV INFECTION
     Route: 048
  2. COMBIVIR [Suspect]
     Indication: HIV INFECTION
  3. VALACYCLOVIR [Suspect]
     Dates: start: 20060915, end: 20061019
  4. AMOXICILLIN [Concomitant]
  5. AMYLASE [Concomitant]
  6. ACETAMINOPHEN [Concomitant]
  7. DIOSMECTITE [Concomitant]
  8. LOCABIOTAL [Concomitant]
  9. IRON [Concomitant]

REACTIONS (8)
  - BRAIN MALFORMATION [None]
  - CLEFT PALATE [None]
  - DRUG EXPOSURE DURING PREGNANCY [None]
  - FEEDING DISORDER NEONATAL [None]
  - FOETAL GROWTH RETARDATION [None]
  - HYPOTONIA NEONATAL [None]
  - RETROGNATHIA [None]
  - VENTRICULAR HYPERTROPHY [None]
